FAERS Safety Report 10694312 (Version 1)
Quarter: 2015Q1

REPORT INFORMATION
  Report Type: Spontaneous
  Country: CN (occurrence: CN)
  Receive Date: 20150107
  Receipt Date: 20150107
  Transmission Date: 20150721
  Serious: Yes (Other)
  Sender: FDA-Public Use
  Company Number: CN-ROCHE-1517619

PATIENT
  Age: 77 Year
  Sex: Female

DRUGS (2)
  1. SODIUM CHLORIDE. [Concomitant]
     Active Substance: SODIUM CHLORIDE
     Route: 041
  2. ROCEPHIN [Suspect]
     Active Substance: CEFTRIAXONE SODIUM
     Indication: ANTIINFLAMMATORY THERAPY
     Dosage: 2 G WHICH WAS DISSOLVED IN 0.9% SODIUM CHLORIDE.
     Route: 041

REACTIONS (2)
  - Haemolysis [Recovered/Resolved]
  - Renal failure [Recovered/Resolved]
